FAERS Safety Report 6700862-9 (Version None)
Quarter: 2010Q2

REPORT INFORMATION
  Report Type: 
  Country: None (occurrence: None)
  Receive Date: 20100428
  Receipt Date: 20100419
  Transmission Date: 20101027
  Serious: Yes (Hospitalization, Other)
  Sender: FDA-Public Use
  Company Number: US-ELI_LILLY_AND_COMPANY-US201003005673

PATIENT
  Sex: Male

DRUGS (2)
  1. ALIMTA [Suspect]
     Indication: MESOTHELIOMA
     Dosage: 1 D/F, OTHER
     Dates: start: 20090101
  2. CISPLATIN [Concomitant]
     Indication: MESOTHELIOMA

REACTIONS (1)
  - AORTIC ANEURYSM [None]
